FAERS Safety Report 6046790-6 (Version None)
Quarter: 2009Q1

REPORT INFORMATION
  Report Type: 
  Country: None (occurrence: None)
  Receive Date: 20090122
  Receipt Date: 20090116
  Transmission Date: 20090719
  Serious: Yes (Death)
  Sender: FDA-Public Use
  Company Number: A0729980A

PATIENT
  Age: 72 Year
  Sex: Male
  Weight: 76.8 kg

DRUGS (7)
  1. AVANDIA [Suspect]
     Dosage: 4MG PER DAY
     Route: 048
     Dates: end: 20070517
  2. AVAPRO [Concomitant]
  3. ALTACE [Concomitant]
  4. MULTI-VITAMIN [Concomitant]
  5. TRAMADOL HCL [Concomitant]
  6. COSOPT [Concomitant]
  7. LUMIGAN [Concomitant]

REACTIONS (2)
  - MYOCARDIAL INFARCTION [None]
  - SUDDEN CARDIAC DEATH [None]
